FAERS Safety Report 9754966 (Version 1)
Quarter: 2013Q4

REPORT INFORMATION
  Report Type: Spontaneous
  Country: CA (occurrence: CA)
  Receive Date: 20131213
  Receipt Date: 20131213
  Transmission Date: 20140711
  Serious: Yes (Death, Other)
  Sender: FDA-Public Use
  Company Number: CA-ASTRAZENECA-2013SE90475

PATIENT
  Age: 71 Year
  Sex: Male

DRUGS (2)
  1. BUDESONIDE [Suspect]
     Indication: CHRONIC OBSTRUCTIVE PULMONARY DISEASE
     Route: 055
  2. ITRACONAZOLE [Interacting]
     Indication: BRONCHOPULMONARY ASPERGILLOSIS

REACTIONS (4)
  - Drug interaction [Unknown]
  - Myocardial infarction [Fatal]
  - Cushing^s syndrome [Unknown]
  - Osteonecrosis [Unknown]
